FAERS Safety Report 9288519 (Version 1)
Quarter: 2013Q2

REPORT INFORMATION
  Report Type: Spontaneous
  Country: GB (occurrence: GB)
  Receive Date: 20130514
  Receipt Date: 20130514
  Transmission Date: 20140414
  Serious: Yes (Other)
  Sender: FDA-Public Use
  Company Number: GB-PFIZER INC-2013146043

PATIENT
  Age: 49 Year
  Sex: Female

DRUGS (1)
  1. CHAMPIX [Suspect]
     Indication: EX-TOBACCO USER
     Dosage: 1 MG, 2X/DAY
     Dates: start: 20130123, end: 20130220

REACTIONS (2)
  - Tearfulness [Recovering/Resolving]
  - Mood altered [Recovering/Resolving]
